FAERS Safety Report 10309465 (Version 3)
Quarter: 2014Q4

REPORT INFORMATION
  Report Type: Report from Study
  Country: CN (occurrence: CN)
  Receive Date: 20140717
  Receipt Date: 20141119
  Transmission Date: 20150528
  Serious: Yes (Other)
  Sender: FDA-Public Use
  Company Number: CN-ROCHE-1435152

PATIENT
  Age: 49 Year
  Sex: Female

DRUGS (1)
  1. HERCEPTIN [Suspect]
     Active Substance: TRASTUZUMAB
     Indication: BREAST CANCER
     Dosage: INITIAL DOSAGE WAS 690MG
     Route: 041
     Dates: start: 20140216, end: 20141105

REACTIONS (8)
  - Bone marrow failure [Unknown]
  - Hepatic steatosis [Unknown]
  - Gastrointestinal disorder [Recovering/Resolving]
  - Electrocardiogram T wave abnormal [Unknown]
  - Electrocardiogram Q wave abnormal [Unknown]
  - Left ventricular dysfunction [Unknown]
  - Disease progression [Unknown]
  - Ventricular hypertrophy [Unknown]

NARRATIVE: CASE EVENT DATE: 20140427
